FAERS Safety Report 5047538-4 (Version None)
Quarter: 2006Q3

REPORT INFORMATION
  Report Type: 
  Country: None (occurrence: None)
  Receive Date: 20060710
  Receipt Date: 20060710
  Transmission Date: 20061208
  Serious: Yes (Hospitalization)
  Sender: FDA-Public Use
  Company Number: None

PATIENT
  Age: 78 Year
  Sex: Male
  Weight: 80 kg

DRUGS (12)
  1. OXYCODONE AND ACETAMINOPHEN [Suspect]
     Indication: PAIN
     Dosage: 5/325 MG BID PRN PO
     Route: 048
     Dates: start: 20060206, end: 20060303
  2. GABAPENTIN [Concomitant]
  3. METOCLOPRAMIDE HCL [Concomitant]
  4. LACTASE ENZYME [Concomitant]
  5. POTASSIUM CHLORIDE [Concomitant]
  6. PRECISION QID TEST STRIPS [Concomitant]
  7. SILDENAFIL CITRATE [Concomitant]
  8. FLUOXETINE HCL [Concomitant]
  9. COLON ELECTROLYTE LAVAGE PDW FOR SOLN [Concomitant]
  10. TRAZODONE HCL [Concomitant]
  11. PROPOXYPHENE-N-100 + APAP [Concomitant]
  12. METOPROLOL TARTRATE [Concomitant]

REACTIONS (2)
  - DELIRIUM [None]
  - MENTAL STATUS CHANGES [None]
